FAERS Safety Report 25739915 (Version 3)
Quarter: 2025Q4

REPORT INFORMATION
  Report Type: Spontaneous
  Country: US (occurrence: US)
  Receive Date: 20250829
  Receipt Date: 20251017
  Transmission Date: 20260118
  Serious: Yes (Other)
  Sender: ACCORD
  Company Number: US-Accord-502554

PATIENT
  Age: 62 Year
  Sex: Female
  Weight: 74.9 kg

DRUGS (4)
  1. FLUOROURACIL [Suspect]
     Active Substance: FLUOROURACIL
     Indication: Adenocarcinoma of appendix
     Dosage: 1ST CYCLE 4500MG IN 48 HOURS (1200 MG/M2/DAY)
     Route: 042
  2. LEUCOVORIN [Concomitant]
     Active Substance: LEUCOVORIN\LEUCOVORIN CALCIUM
     Indication: Adenocarcinoma of appendix
     Dosage: 11 CYCLES (1ST CYCLE; NEXT TWO CYCLES INPATIENT; FOLLOWED BY ANOTHER 8 CYCLES AS AN OUTPATIENT)
  3. IRINOTECAN [Concomitant]
     Active Substance: IRINOTECAN
     Indication: Adenocarcinoma of appendix
     Dosage: 11 CYCLES (1ST CYCLE; NEXT TWO CYCLES INPATIENT; FOLLOWED BY ANOTHER 8 CYCLES AS AN OUTPATIEN)
  4. OXALIPLATIN [Concomitant]
     Active Substance: OXALIPLATIN
     Indication: Adenocarcinoma of appendix
     Dosage: 11 CYCLES (1ST CYCLE; NEXT TWO CYCLES INPATIENT; FOLLOWED BY ANOTHER 8 CYCLES AS AN OUTPATIENT)

REACTIONS (3)
  - Arteriospasm coronary [Recovered/Resolved]
  - Angina unstable [Recovered/Resolved]
  - Off label use [Unknown]
